FAERS Safety Report 7826012-3 (Version None)
Quarter: 2011Q4

REPORT INFORMATION
  Report Type: 
  Country: None (occurrence: None)
  Receive Date: 20111019
  Receipt Date: 20111014
  Transmission Date: 20120403
  Serious: Yes (Death, Hospitalization, Other)
  Sender: FDA-Public Use
  Company Number: JP-AMGEN-JPNCT2011006966

PATIENT
  Age: 67 Year
  Sex: Male
  Weight: 50 kg

DRUGS (27)
  1. CANDESARTAN CILEXETIL [Concomitant]
     Indication: HYPERTENSION
     Dosage: 8 MG, QD
     Route: 048
     Dates: start: 20101112, end: 20110505
  2. STRONG NEO-MINOPHAGEN C [Concomitant]
     Indication: ALLERGY PROPHYLAXIS
     Dosage: 2 DF, QD
     Route: 042
     Dates: start: 20101112, end: 20110422
  3. PANITUMUMAB [Suspect]
     Dosage: 6 MG/KG, Q2WK
     Route: 041
     Dates: start: 20110422, end: 20110422
  4. PRIMPERAN TAB [Concomitant]
     Indication: PROPHYLAXIS OF NAUSEA AND VOMITING
     Dosage: 1 DF, QD
     Route: 042
     Dates: start: 20101112, end: 20110422
  5. CONIEL [Concomitant]
     Indication: HYPERTENSION
     Dosage: 4 MG, QD
     Route: 048
     Dates: start: 20101112, end: 20110505
  6. FLUOROURACIL [Suspect]
     Dosage: 2400 MG, Q2WK
     Route: 041
     Dates: start: 20101112
  7. FLUOROURACIL [Suspect]
     Dosage: 400 MG, Q2WK
     Route: 040
     Dates: start: 20110107, end: 20110121
  8. LEVOLEUCOVORIN CALCIUM [Suspect]
     Indication: COLORECTAL CANCER
     Dosage: 200 MG, Q2WK
     Route: 041
     Dates: start: 20101112
  9. LEVOLEUCOVORIN CALCIUM [Suspect]
     Dosage: 200 MG, Q2WK
     Route: 041
     Dates: end: 20110422
  10. PROTECADIN [Concomitant]
     Indication: PROPHYLAXIS AGAINST GASTROINTESTINAL ULCER
     Dosage: 20 MG, BID
     Route: 048
     Dates: start: 20101112, end: 20110505
  11. MAGNESIUM OXIDE [Concomitant]
     Indication: CONSTIPATION
     Dosage: 1 G, BID
     Route: 048
     Dates: start: 20101112, end: 20110505
  12. LOXONIN [Concomitant]
     Indication: PAIN
     Dosage: 60 MG, TID
     Route: 048
     Dates: start: 20101112, end: 20110505
  13. PANITUMUMAB [Suspect]
     Indication: COLORECTAL CANCER
     Dosage: 6 MG/KG, Q2WK
     Route: 041
     Dates: start: 20101112, end: 20101126
  14. PANITUMUMAB [Suspect]
     Dosage: 6 MG/KG, Q2WK
     Route: 041
     Dates: start: 20110311, end: 20110325
  15. IRINOTECAN HCL [Suspect]
     Indication: COLORECTAL CANCER
     Dosage: 150 MG, Q2WK
     Route: 041
     Dates: start: 20101112, end: 20110422
  16. CORTICOSTEROIDS [Concomitant]
     Indication: PROPHYLAXIS
     Dosage: UNK
     Route: 065
  17. ALOXI [Concomitant]
     Indication: PROPHYLAXIS OF NAUSEA AND VOMITING
     Dosage: 1 DF, QD
     Route: 042
     Dates: start: 20101112, end: 20110422
  18. CHLOR-TRIMETON [Concomitant]
     Indication: PROPHYLAXIS
     Dosage: 1 DF, QD
     Route: 042
     Dates: start: 20101112, end: 20110422
  19. AMOBAN [Concomitant]
     Indication: INSOMNIA
     Dosage: 7.5 MG, QD
     Route: 048
     Dates: start: 20101112, end: 20110505
  20. PANITUMUMAB [Suspect]
     Dosage: 6 MG/KG, Q2WK
     Route: 041
     Dates: start: 20101224, end: 20110204
  21. FLUOROURACIL [Suspect]
     Indication: COLORECTAL CANCER
     Dosage: 400 MG, Q2WK
     Route: 040
     Dates: start: 20101112
  22. FLUOROURACIL [Suspect]
     Dosage: 400 MG, Q2WK
     Route: 040
     Dates: end: 20110422
  23. FLUOROURACIL [Suspect]
     Dosage: 2400 MG, Q2WK
     Route: 041
     Dates: end: 20110422
  24. LEVOLEUCOVORIN CALCIUM [Suspect]
     Dosage: 200 MG, Q2WK
     Route: 041
     Dates: start: 20110107, end: 20110121
  25. DECADRON [Concomitant]
     Indication: PROPHYLAXIS
     Dosage: 8 MG, QD
     Route: 042
     Dates: start: 20101112, end: 20110422
  26. FLUOROURACIL [Suspect]
     Dosage: 2400 MG, Q2WK
     Route: 041
     Dates: start: 20110107, end: 20110121
  27. ANTIHISTAMINES [Concomitant]
     Indication: PROPHYLAXIS
     Dosage: UNK
     Route: 065

REACTIONS (6)
  - RENAL DISORDER [None]
  - PARONYCHIA [None]
  - ANAEMIA [None]
  - DRY SKIN [None]
  - RENAL FAILURE ACUTE [None]
  - BLOOD POTASSIUM INCREASED [None]
